FAERS Safety Report 19942595 (Version 1)
Quarter: 2021Q4

REPORT INFORMATION
  Report Type: Spontaneous
  Country: US (occurrence: US)
  Receive Date: 20211008
  Receipt Date: 20211008
  Transmission Date: 20220303
  Serious: Yes (Other)
  Sender: FDA-Public Use
  Company Number: None

PATIENT
  Age: 56 Year
  Sex: Female
  Weight: 84.6 kg

DRUGS (1)
  1. TIROSINT [Suspect]
     Active Substance: LEVOTHYROXINE SODIUM
     Indication: Thyroid cancer
     Dosage: ?          OTHER STRENGTH:75 MCG;QUANTITY:1 1;
     Route: 048

REACTIONS (1)
  - Memory impairment [None]

NARRATIVE: CASE EVENT DATE: 20210913
